FAERS Safety Report 10959856 (Version 1)
Quarter: 2015Q1

REPORT INFORMATION
  Report Type: Spontaneous
  Country: US (occurrence: None)
  Receive Date: 20150326
  Receipt Date: 20150326
  Transmission Date: 20150721
  Serious: Yes (Hospitalization)
  Sender: FDA-Public Use
  Company Number: None

PATIENT
  Age: 58 Year
  Sex: Female
  Weight: 97 kg

DRUGS (4)
  1. LISINOPRIL-HYDROCHLOROTHIAZIDE [Concomitant]
     Active Substance: HYDROCHLOROTHIAZIDE\LISINOPRIL
  2. 5-FLUOROURACIL (5-FU) [Suspect]
     Active Substance: FLUOROURACIL
     Dosage: RECEIVED 836MG AND IV PUSH ON 3/2 AND 5016MG CONTINUOUS INFUSION OVER 46 HOURS
     Dates: end: 20150209
  3. LEUCOVORIN CALCIUM. [Suspect]
     Active Substance: LEUCOVORIN CALCIUM
     Dates: end: 20150209
  4. ELOXATIN [Suspect]
     Active Substance: OXALIPLATIN
     Dates: end: 20150209

REACTIONS (6)
  - Discomfort [None]
  - Hypokinesia [None]
  - Eye movement disorder [None]
  - Tremor [None]
  - Hypophagia [None]
  - Fluid intake reduced [None]

NARRATIVE: CASE EVENT DATE: 20150308
